FAERS Safety Report 6282458-9 (Version None)
Quarter: 2009Q3

REPORT INFORMATION
  Report Type: 
  Country: None (occurrence: None)
  Receive Date: 20090724
  Receipt Date: 20090715
  Transmission Date: 20100115
  Serious: Yes (Other)
  Sender: FDA-Public Use
  Company Number: FR-CELGENEUS-056-21880-09030958

PATIENT
  Sex: Male
  Weight: 76 kg

DRUGS (3)
  1. REVLIMID [Suspect]
     Indication: MULTIPLE MYELOMA
     Route: 048
     Dates: start: 20090305, end: 20090309
  2. REVLIMID [Suspect]
     Route: 048
     Dates: start: 20090309
  3. CHIBROXINE [Concomitant]
     Indication: CONJUNCTIVITIS
     Route: 047
     Dates: start: 20090308

REACTIONS (2)
  - FACE OEDEMA [None]
  - OEDEMA [None]
